FAERS Safety Report 6892298-5 (Version None)
Quarter: 2010Q3

REPORT INFORMATION
  Report Type: 
  Country: None (occurrence: None)
  Receive Date: 20100731
  Receipt Date: 20080403
  Transmission Date: 20110219
  Serious: Yes (Other)
  Sender: FDA-Public Use
  Company Number: US-PFIZER INC-2008022374

PATIENT
  Sex: Female

DRUGS (8)
  1. DEPO-MEDROL [Suspect]
     Indication: HEADACHE
     Route: 030
     Dates: start: 20080311, end: 20080311
  2. ALLOPURINOL [Concomitant]
  3. ATENOLOL [Concomitant]
  4. MIDRIN [Concomitant]
  5. ZESTRIL [Concomitant]
  6. INDOCIN [Concomitant]
  7. COLCHICINE [Concomitant]
  8. ZYLOPRIM [Concomitant]

REACTIONS (1)
  - ANAPHYLACTIC REACTION [None]
